FAERS Safety Report 14432742 (Version 8)
Quarter: 2018Q2

REPORT INFORMATION
  Report Type: Spontaneous
  Country: CA (occurrence: CA)
  Receive Date: 20180124
  Receipt Date: 20180530
  Transmission Date: 20180711
  Serious: Yes (Hospitalization, Other)
  Sender: FDA-Public Use
  Company Number: CA-PFIZER INC-2018027771

PATIENT
  Age: 40 Year
  Sex: Female
  Weight: 75 kg

DRUGS (7)
  1. SOLU-MEDROL [Suspect]
     Active Substance: METHYLPREDNISOLONE SODIUM SUCCINATE
     Dosage: UNK
     Route: 042
     Dates: start: 201710
  2. METHOTREXATE SODIUM. [Suspect]
     Active Substance: METHOTREXATE SODIUM
     Dosage: 10 MG, WEEKLY
     Dates: start: 201710
  3. INFLECTRA [Suspect]
     Active Substance: INFLIXIMAB-DYYB
     Dosage: 600 MG, CYCLIC (AT 1, 4 WEEKS, THEN 300 MG EVERY 8 WEEKS)
     Route: 042
     Dates: start: 20180228
  4. INFLECTRA [Suspect]
     Active Substance: INFLIXIMAB-DYYB
     Dosage: 600 MG, CYCLIC (AT 1, 4 WEEKS, THEN 300 MG EVERY 8 WEEKS)
     Route: 042
     Dates: start: 20180117
  5. INFLECTRA [Suspect]
     Active Substance: INFLIXIMAB-DYYB
     Indication: COLITIS ULCERATIVE
     Dosage: 600 MG, CYCLIC (AT 1, 4 WEEKS, THEN 300 MG EVERY 8 WEEKS)
     Route: 042
     Dates: start: 20171022
  6. INFLECTRA [Suspect]
     Active Substance: INFLIXIMAB-DYYB
     Dosage: 600 MG, CYCLIC (AT 1, 4 WEEKS, THEN 300 MG EVERY 8 WEEKS)
     Route: 042
     Dates: start: 20180411
  7. PREDNISONE. [Suspect]
     Active Substance: PREDNISONE
     Dosage: 40 MG (IN DECREASING DOSE), UNK
     Dates: start: 201710

REACTIONS (3)
  - Pulmonary embolism [Unknown]
  - Product use issue [Unknown]
  - Condition aggravated [Unknown]

NARRATIVE: CASE EVENT DATE: 20171022
